FAERS Safety Report 17105352 (Version 1)
Quarter: 2019Q4

REPORT INFORMATION
  Report Type: Spontaneous
  Country: FR (occurrence: FR)
  Receive Date: 20191203
  Receipt Date: 20191203
  Transmission Date: 20200122
  Serious: Yes (Hospitalization)
  Sender: FDA-Public Use
  Company Number: FR-MYLANLABS-2019M1116766

PATIENT
  Age: 71 Year
  Sex: Female

DRUGS (2)
  1. QUETIAPINE. [Suspect]
     Active Substance: QUETIAPINE
     Indication: PSYCHOTIC DISORDER
     Dosage: 300 MILLIGRAM, QD
     Route: 048
     Dates: end: 20190522
  2. LOXAPAC                            /00401802/ [Interacting]
     Active Substance: LOXAPINE SUCCINATE
     Indication: PSYCHOTIC DISORDER
     Dosage: 75 MILLIGRAM, QD
     Route: 048
     Dates: start: 20190519, end: 20190522

REACTIONS (2)
  - Neuroleptic malignant syndrome [Recovered/Resolved]
  - Drug interaction [Recovered/Resolved]

NARRATIVE: CASE EVENT DATE: 20190521
